FAERS Safety Report 8144884-2 (Version None)
Quarter: 2012Q1

REPORT INFORMATION
  Report Type: 
  Country: None (occurrence: None)
  Receive Date: 20120217
  Receipt Date: 20120208
  Transmission Date: 20120608
  Serious: No
  Sender: FDA-Public Use
  Company Number: JP-GLAXOSMITHKLINE-B0774259A

PATIENT
  Sex: Female
  Weight: 70 kg

DRUGS (16)
  1. DEPAS [Concomitant]
     Indication: INTERVERTEBRAL DISC PROTRUSION
     Route: 048
  2. TYKERB [Suspect]
     Indication: BREAST CANCER
     Dosage: 1250MG PER DAY
     Route: 048
     Dates: start: 20110111, end: 20110404
  3. XELODA [Suspect]
     Dosage: 3000MG PER DAY
     Route: 048
     Dates: start: 20110111, end: 20110124
  4. TYKERB [Suspect]
     Dosage: 1250MG PER DAY
     Route: 048
     Dates: start: 20110412, end: 20110801
  5. ZOMETA [Concomitant]
     Dosage: 3.3MG PER DAY
     Route: 042
     Dates: start: 20110705, end: 20110705
  6. XELODA [Suspect]
     Dosage: 2400MG PER DAY
     Route: 048
     Dates: start: 20110201, end: 20110404
  7. CANDESARTAN CILEXETIL [Concomitant]
     Indication: HYPERTENSION
     Route: 048
  8. LOXONIN [Concomitant]
     Indication: INTERVERTEBRAL DISC PROTRUSION
     Route: 062
  9. RHYTHMY [Concomitant]
     Indication: INTERVERTEBRAL DISC PROTRUSION
     Route: 048
  10. XELODA [Suspect]
     Dosage: 2400MG PER DAY
     Route: 048
     Dates: start: 20110419, end: 20110620
  11. ZANTAC [Concomitant]
     Indication: INTERVERTEBRAL DISC PROTRUSION
     Route: 048
  12. NEUROTROPIN [Concomitant]
     Indication: INTERVERTEBRAL DISC PROTRUSION
     Route: 048
  13. MOBIC [Concomitant]
     Indication: INTERVERTEBRAL DISC PROTRUSION
     Route: 048
  14. TRICHLORMETHIAZIDE [Concomitant]
     Indication: HYPERTENSION
     Route: 048
  15. XELODA [Suspect]
     Dosage: 2400MG PER DAY
     Route: 048
     Dates: start: 20110712, end: 20110801
  16. ZOMETA [Concomitant]
     Indication: BREAST CANCER
     Dosage: 4MG PER DAY
     Route: 042
     Dates: start: 20110412, end: 20110607

REACTIONS (1)
  - PALMAR-PLANTAR ERYTHRODYSAESTHESIA SYNDROME [None]
